FAERS Safety Report 6860804-2 (Version None)
Quarter: 2010Q3

REPORT INFORMATION
  Report Type: 
  Country: None (occurrence: None)
  Receive Date: 20100720
  Receipt Date: 20100715
  Transmission Date: 20110219
  Serious: Yes (Hospitalization)
  Sender: FDA-Public Use
  Company Number: US-MERCK-1007USA01851

PATIENT
  Age: 82 Year
  Sex: Male

DRUGS (5)
  1. JANUVIA [Suspect]
     Indication: DIABETES MELLITUS
     Route: 048
     Dates: start: 20080101
  2. METFORMIN [Concomitant]
     Route: 065
  3. PLAVIX [Concomitant]
     Route: 065
  4. ALDORIL 15 [Concomitant]
     Route: 048
  5. NORVASC [Concomitant]
     Route: 065

REACTIONS (4)
  - BLOOD PRESSURE FLUCTUATION [None]
  - HYPERHIDROSIS [None]
  - MALAISE [None]
  - SWOLLEN TONGUE [None]
